FAERS Safety Report 7990218-3 (Version None)
Quarter: 2011Q4

REPORT INFORMATION
  Report Type: 
  Country: None (occurrence: None)
  Receive Date: 20111219
  Receipt Date: 20111215
  Transmission Date: 20120403
  Serious: Yes (Other)
  Sender: FDA-Public Use
  Company Number: JP-PFIZER INC-2011304758

PATIENT
  Age: 75 Year
  Sex: Female
  Weight: 46 kg

DRUGS (9)
  1. ASPIRIN [Concomitant]
  2. CYTOTEC [Concomitant]
  3. CALCIUM CARBONATE [Concomitant]
  4. AMOBAN [Concomitant]
  5. LYRICA [Suspect]
     Indication: NEURALGIA
     Dosage: 25 MG, 1X/DAY
     Route: 048
     Dates: start: 20111203, end: 20111203
  6. METHYCOBAL [Concomitant]
  7. PROMACTA [Concomitant]
  8. MUCOSIL-10 [Concomitant]
  9. ZOLPIDEM [Concomitant]

REACTIONS (3)
  - MALAISE [None]
  - COGNITIVE DISORDER [None]
  - SPEECH DISORDER [None]
